FAERS Safety Report 23514304 (Version 6)
Quarter: 2025Q3

REPORT INFORMATION
  Report Type: Spontaneous
  Country: JP (occurrence: JP)
  Receive Date: 20240212
  Receipt Date: 20250802
  Transmission Date: 20251020
  Serious: Yes (Life-Threatening, Hospitalization, Other)
  Sender: ALEXION PHARMACEUTICALS
  Company Number: 2024A033332

PATIENT
  Age: 68 Year
  Sex: Male

DRUGS (10)
  1. IMFINZI [Suspect]
     Active Substance: DURVALUMAB
     Indication: Non-small cell lung cancer
     Dosage: 003 MILLIGRAM, Q3W
     Dates: start: 20240116, end: 20240419
  2. IMFINZI [Suspect]
     Active Substance: DURVALUMAB
     Dosage: 3 MILLIGRAM, Q4W
     Dates: start: 20240523
  3. IMJUDO [Suspect]
     Active Substance: TREMELIMUMAB\TREMELIMUMAB-ACTL
     Indication: Non-small cell lung cancer
     Dosage: 3 MILLIGRAM, Q3W
     Dates: start: 20240116, end: 20240620
  4. CARBOPLATIN [Concomitant]
     Active Substance: CARBOPLATIN
     Indication: Non-small cell lung cancer
     Route: 065
     Dates: start: 20240116, end: 20240116
  5. CARBOPLATIN [Concomitant]
     Active Substance: CARBOPLATIN
     Route: 065
     Dates: start: 20240216, end: 20240315
  6. CARBOPLATIN [Concomitant]
     Active Substance: CARBOPLATIN
     Route: 065
     Dates: start: 20240419, end: 20240419
  7. PEMETREXED [Concomitant]
     Active Substance: PEMETREXED
     Indication: Non-small cell lung cancer
     Dosage: 500 MILLIGRAM/SQ. METER, Q3W
     Route: 065
     Dates: start: 20240116, end: 20240116
  8. PEMETREXED [Concomitant]
     Active Substance: PEMETREXED
     Dosage: 400 MILLIGRAM/SQ. METER, Q3W
     Route: 065
     Dates: start: 20240216, end: 20240315
  9. PEMETREXED [Concomitant]
     Active Substance: PEMETREXED
     Dosage: 300 MILLIGRAM/SQ. METER, Q3W
     Route: 065
     Dates: start: 20240419, end: 20240419
  10. PEMETREXED [Concomitant]
     Active Substance: PEMETREXED
     Dosage: 300 MILLIGRAM/SQ. METER, Q4W
     Route: 065
     Dates: start: 20240523

REACTIONS (7)
  - Neutropenia [Not Recovered/Not Resolved]
  - Thrombocytopenia [Not Recovered/Not Resolved]
  - Epistaxis [Unknown]
  - Carcinoembryonic antigen increased [Unknown]
  - Metastases to lung [Unknown]
  - Cataract [Unknown]
  - Anaemia [Not Recovered/Not Resolved]

NARRATIVE: CASE EVENT DATE: 20240126
